FAERS Safety Report 9031584 (Version 1)
Quarter: 2013Q1

REPORT INFORMATION
  Report Type: Spontaneous
  Country: PE (occurrence: PE)
  Receive Date: 20130124
  Receipt Date: 20130124
  Transmission Date: 20140127
  Serious: Yes (Hospitalization)
  Sender: FDA-Public Use
  Company Number: PE-ROCHE-1181795

PATIENT
  Age: 76 Year
  Sex: Female

DRUGS (3)
  1. ALTEPLASE [Suspect]
     Indication: CEREBROVASCULAR ACCIDENT
     Route: 042
     Dates: start: 20130106
  2. ALTEPLASE [Suspect]
     Indication: THROMBOLYSIS
  3. NIMODIPINE [Concomitant]

REACTIONS (1)
  - Acute pulmonary oedema [Not Recovered/Not Resolved]
